FAERS Safety Report 5311643-5 (Version None)
Quarter: 2007Q2

REPORT INFORMATION
  Report Type: 
  Country: None (occurrence: None)
  Receive Date: 20070430
  Receipt Date: 20060522
  Transmission Date: 20071010
  Serious: No
  Sender: FDA-Public Use
  Company Number: 2006UW09940

PATIENT
  Age: 44 Year
  Sex: Male
  Weight: 113.4 kg

DRUGS (6)
  1. ZOMIG [Suspect]
     Indication: MIGRAINE
     Route: 048
     Dates: start: 20050901
  2. ZOMIG [Suspect]
     Route: 048
     Dates: start: 20050901
  3. TOPAMAX [Concomitant]
  4. NAPROXEN [Concomitant]
  5. TYLENOL W/ CODEINE [Concomitant]
  6. GABAPENTIN [Concomitant]

REACTIONS (3)
  - ABNORMAL SENSATION IN EYE [None]
  - DRY EYE [None]
  - HEADACHE [None]
